FAERS Safety Report 13956136 (Version 1)
Quarter: 2017Q3

REPORT INFORMATION
  Report Type: Spontaneous
  Country: US (occurrence: US)
  Receive Date: 20170911
  Receipt Date: 20170911
  Transmission Date: 20171128
  Serious: Yes (Other)
  Sender: FDA-Public Use
  Company Number: US-ABBVIE-17K-163-2092817-00

PATIENT
  Sex: Male
  Weight: 77 kg

DRUGS (2)
  1. ANDROGEL [Suspect]
     Active Substance: TESTOSTERONE
     Dosage: TWO 2.5 GRAM (40.5MG) PACKETS DAILY
     Route: 061
     Dates: start: 2017
  2. ANDROGEL [Suspect]
     Active Substance: TESTOSTERONE
     Indication: HYPOGONADISM
     Dosage: ONE 2.5 GRAM (40.5MG ) PACKET DAILY
     Route: 061
     Dates: start: 2016, end: 2017

REACTIONS (7)
  - Drug administration error [Not Recovered/Not Resolved]
  - Blood testosterone decreased [Not Recovered/Not Resolved]
  - Depressed level of consciousness [Not Recovered/Not Resolved]
  - Blood testosterone decreased [Recovered/Resolved]
  - Product storage error [Not Recovered/Not Resolved]
  - Asthenia [Not Recovered/Not Resolved]
  - Libido decreased [Not Recovered/Not Resolved]

NARRATIVE: CASE EVENT DATE: 2016
